FAERS Safety Report 6983496-0 (Version None)
Quarter: 2010Q3

REPORT INFORMATION
  Report Type: 
  Country: None (occurrence: None)
  Receive Date: 20100914
  Receipt Date: 20080703
  Transmission Date: 20110219
  Serious: No
  Sender: FDA-Public Use
  Company Number: US-WYE-H03554108

PATIENT
  Age: 42 Year
  Sex: Female

DRUGS (5)
  1. ADVIL LIQUI-GELS [Suspect]
     Indication: NECK PAIN
     Dosage: 2 CAPLETS,4 TIMES DAILY
     Route: 048
     Dates: start: 20040101, end: 20080201
  2. ADVIL LIQUI-GELS [Suspect]
     Indication: BACK PAIN
     Dosage: 2 CAPLETS, 2 TIMES DAILY
     Route: 048
     Dates: start: 20080101, end: 20080301
  3. ADVIL LIQUI-GELS [Suspect]
     Indication: ARTHRALGIA
  4. ADVIL LIQUI-GELS [Suspect]
     Indication: DENTAL DISCOMFORT
     Route: 048
     Dates: end: 20080401
  5. SYNTHROID [Concomitant]

REACTIONS (6)
  - FOLLICULITIS [None]
  - FURUNCLE [None]
  - OVERDOSE [None]
  - RASH ERYTHEMATOUS [None]
  - RASH MACULO-PAPULAR [None]
  - RASH PRURITIC [None]
